FAERS Safety Report 6966182-2 (Version None)
Quarter: 2010Q3

REPORT INFORMATION
  Report Type: 
  Country: None (occurrence: None)
  Receive Date: 20100903
  Receipt Date: 20100901
  Transmission Date: 20110219
  Serious: Yes (Hospitalization)
  Sender: FDA-Public Use
  Company Number: DE-ABBOTT-10P-062-0655586-00

PATIENT
  Sex: Female
  Weight: 70 kg

DRUGS (9)
  1. HUMIRA [Suspect]
     Indication: RHEUMATOID ARTHRITIS
     Route: 058
     Dates: start: 20100331, end: 20100519
  2. HUMIRA [Suspect]
     Dosage: UNTIL REMISSION
     Dates: start: 20100519, end: 20100603
  3. HUMIRA [Suspect]
  4. MTX [Concomitant]
     Indication: RHEUMATOID ARTHRITIS
     Route: 048
     Dates: end: 20080101
  5. MTX [Concomitant]
     Dosage: 20 MG, UP TO 25 MG/WEEK
     Dates: start: 20090101
  6. MTX [Concomitant]
     Dates: start: 20100528
  7. FOLIC ACID [Concomitant]
     Indication: PRODUCT USED FOR UNKNOWN INDICATION
  8. IBUPROFEN [Concomitant]
     Indication: PRODUCT USED FOR UNKNOWN INDICATION
     Dates: start: 20090101
  9. PREDNISOLONE [Concomitant]
     Indication: RHEUMATOID ARTHRITIS
     Dosage: INITIAL BRIDGING THERAPY
     Dates: start: 20100101

REACTIONS (7)
  - DECREASED APPETITE [None]
  - DEPRESSED MOOD [None]
  - FATIGUE [None]
  - INFECTION [None]
  - JOINT EFFUSION [None]
  - RHEUMATOID ARTHRITIS [None]
  - UPPER RESPIRATORY TRACT INFECTION [None]
